FAERS Safety Report 17009490 (Version 3)
Quarter: 2021Q4

REPORT INFORMATION
  Report Type: Spontaneous
  Country: US (occurrence: US)
  Receive Date: 20191108
  Receipt Date: 20211202
  Transmission Date: 20220303
  Serious: Yes (Other)
  Sender: FDA-Public Use
  Company Number: US-009507513-1910USA013270

PATIENT
  Age: 81 Year
  Sex: Male
  Weight: 95.238 kg

DRUGS (3)
  1. KEYTRUDA [Suspect]
     Active Substance: PEMBROLIZUMAB
     Indication: Lung squamous cell carcinoma stage IV
     Dosage: UNK
     Route: 042
     Dates: start: 201803
  2. IMODIUM [Concomitant]
     Active Substance: LOPERAMIDE HYDROCHLORIDE
     Dosage: UNK
  3. PRINIVIL [Concomitant]
     Active Substance: LISINOPRIL
     Dosage: UNK
     Route: 048

REACTIONS (7)
  - Malignant neoplasm progression [Unknown]
  - Hepatic enzyme increased [Recovering/Resolving]
  - Haemoptysis [Unknown]
  - Haemoglobin abnormal [Recovering/Resolving]
  - Oedema peripheral [Unknown]
  - Blood glucose increased [Recovering/Resolving]
  - Pain [Unknown]

NARRATIVE: CASE EVENT DATE: 20191016
